FAERS Safety Report 6111156-7 (Version None)
Quarter: 2009Q1

REPORT INFORMATION
  Report Type: 
  Country: None (occurrence: None)
  Receive Date: 20090311
  Receipt Date: 20080811
  Transmission Date: 20090719
  Serious: No
  Sender: FDA-Public Use
  Company Number: US-KINGPHARMUSA00001-K200800949

PATIENT
  Sex: Male

DRUGS (1)
  1. ALTACE [Suspect]
     Dates: end: 20080101

REACTIONS (3)
  - COUGH [None]
  - DRY THROAT [None]
  - SLEEP DISORDER [None]
